FAERS Safety Report 21618323 (Version 1)
Quarter: 2022Q4

REPORT INFORMATION
  Report Type: Report from Study
  Country: GB (occurrence: GB)
  Receive Date: 20221119
  Receipt Date: 20221119
  Transmission Date: 20230112
  Serious: Yes (Other)
  Sender: FDA-Public Use
  Company Number: GB-002147023-NVSC2022GB259823

PATIENT
  Age: 53 Year
  Sex: Female

DRUGS (1)
  1. KESIMPTA [Suspect]
     Active Substance: OFATUMUMAB
     Indication: Multiple sclerosis
     Dosage: 20 MG, OTHER (WEEK 0, WEEK 1, WEEK 2, WEEK 4 THEN MONTHLY)
     Route: 058
     Dates: start: 20221115

REACTIONS (7)
  - Blindness transient [Recovered/Resolved]
  - Limb discomfort [Recovered/Resolved]
  - Pain [Recovering/Resolving]
  - Insomnia [Unknown]
  - Vision blurred [Recovered/Resolved]
  - Headache [Not Recovered/Not Resolved]
  - Chills [Unknown]

NARRATIVE: CASE EVENT DATE: 20221115
